FAERS Safety Report 4918670-8 (Version None)
Quarter: 2006Q1

REPORT INFORMATION
  Report Type: 
  Country: None (occurrence: None)
  Receive Date: 20060222
  Receipt Date: 20060220
  Transmission Date: 20060701
  Serious: Yes (Hospitalization)
  Sender: FDA-Public Use
  Company Number: 2006AP00863

PATIENT
  Age: 80 Year
  Sex: Female

DRUGS (6)
  1. OMEPRAL [Suspect]
     Indication: REFLUX OESOPHAGITIS
     Route: 048
     Dates: start: 20050801, end: 20060216
  2. OLMETEC [Suspect]
     Route: 048
     Dates: start: 20050801, end: 20060216
  3. ALDACTONE [Concomitant]
     Route: 048
     Dates: start: 20050801, end: 20060216
  4. LANDEL [Concomitant]
     Route: 048
     Dates: start: 20050801, end: 20060216
  5. HALCION [Concomitant]
     Route: 048
     Dates: start: 20050801, end: 20060216
  6. CIPROFLOXACIN [Concomitant]
     Indication: INFLUENZA
     Dates: start: 20060216

REACTIONS (1)
  - BLOOD CREATINE PHOSPHOKINASE INCREASED [None]
